FAERS Safety Report 10597575 (Version 5)
Quarter: 2015Q3

REPORT INFORMATION
  Report Type: Report from Study
  Country: US (occurrence: US)
  Receive Date: 20141121
  Receipt Date: 20150731
  Transmission Date: 20151125
  Serious: Yes (Other)
  Sender: FDA-Public Use
  Company Number: US-BIOGENIDEC-2014BI117265

PATIENT
  Age: 59 Year
  Sex: Female

DRUGS (1)
  1. TYSABRI [Suspect]
     Active Substance: NATALIZUMAB
     Indication: MULTIPLE SCLEROSIS
     Route: 042
     Dates: start: 20120802, end: 20150106

REACTIONS (5)
  - Squamous cell carcinoma of skin [Recovered/Resolved]
  - Malignant melanoma [Not Recovered/Not Resolved]
  - Glomerular filtration rate decreased [Recovered/Resolved]
  - Basal cell carcinoma [Recovered/Resolved]
  - Precancerous skin lesion [Recovered/Resolved]

NARRATIVE: CASE EVENT DATE: 20130327
